FAERS Safety Report 9192051 (Version 1)
Quarter: 2013Q1

REPORT INFORMATION
  Report Type: Spontaneous
  Country: US (occurrence: None)
  Receive Date: 20120703
  Receipt Date: 20120703
  Transmission Date: 20140127
  Serious: Yes (Hospitalization)
  Sender: FDA-Public Use
  Company Number: PHEH2012US009273

PATIENT
  Age: 55 Year
  Sex: Female

DRUGS (5)
  1. GILENYA [Suspect]
     Indication: MULTIPLE SCLEROSIS
     Route: 048
     Dates: start: 20120427, end: 20120427
  2. DETROL (TOLERTERODINE L-TARTRATE) [Concomitant]
  3. SIMVASTATIN (SIMVASTATIN) [Concomitant]
  4. OMEPRAZOLE (OMEPRAZOLE) [Concomitant]
  5. RAMIPRIL (RAMIPRIL) [Concomitant]

REACTIONS (1)
  - Blood pressure increased [None]
